FAERS Safety Report 18799086 (Version 1)
Quarter: 2021Q1

REPORT INFORMATION
  Report Type: Spontaneous
  Country: US (occurrence: US)
  Receive Date: 20210127
  Receipt Date: 20210127
  Transmission Date: 20210419
  Serious: No
  Sender: FDA-Public Use
  Company Number: None

PATIENT
  Age: 28 Year
  Sex: Male
  Weight: 69.75 kg

DRUGS (3)
  1. FINASTERIDE 1 MG TABLETS [Suspect]
     Active Substance: FINASTERIDE
     Indication: ALOPECIA
     Dosage: ?          QUANTITY:1 TABLET(S);?
     Route: 048
     Dates: start: 20201209, end: 20210127
  2. ENTYVIO 30 MG [Concomitant]
  3. MINOXIDIL 5% [Concomitant]
     Active Substance: MINOXIDIL

REACTIONS (1)
  - Depression [None]

NARRATIVE: CASE EVENT DATE: 20210127
